FAERS Safety Report 6964804-3 (Version None)
Quarter: 2010Q3

REPORT INFORMATION
  Report Type: 
  Country: None (occurrence: None)
  Receive Date: 20100903
  Receipt Date: 20100826
  Transmission Date: 20110219
  Serious: Yes (Other)
  Sender: FDA-Public Use
  Company Number: ZA-JNJFOC-20100808754

PATIENT
  Sex: Female
  Weight: 60 kg

DRUGS (2)
  1. REVELLEX [Suspect]
     Indication: CROHN'S DISEASE
     Route: 042
  2. REVELLEX [Suspect]
     Route: 042

REACTIONS (2)
  - INTESTINAL STENOSIS [None]
  - LIVER FUNCTION TEST ABNORMAL [None]
